FAERS Safety Report 18394130 (Version 1)
Quarter: 2020Q4

REPORT INFORMATION
  Report Type: Spontaneous
  Country: US (occurrence: US)
  Receive Date: 20201016
  Receipt Date: 20201016
  Transmission Date: 20210114
  Serious: Yes (Hospitalization)
  Sender: FDA-Public Use
  Company Number: US-ASTRAZENECA-2020SF32405

PATIENT
  Sex: Female
  Weight: 81.6 kg

DRUGS (3)
  1. FASENRA [Suspect]
     Active Substance: BENRALIZUMAB
     Indication: EOSINOPHIL COUNT INCREASED
     Dosage: 2.0MG UNKNOWN
     Route: 058
     Dates: start: 202003
  2. FASENRA [Suspect]
     Active Substance: BENRALIZUMAB
     Indication: DYSPNOEA
     Dosage: 2.0MG UNKNOWN
     Route: 058
     Dates: start: 202003
  3. FASENRA [Suspect]
     Active Substance: BENRALIZUMAB
     Indication: ASTHMA
     Dosage: 2.0MG UNKNOWN
     Route: 058
     Dates: start: 202003

REACTIONS (5)
  - Blood immunoglobulin G increased [Unknown]
  - Oxygen saturation decreased [Unknown]
  - Wheezing [Unknown]
  - Dyspnoea [Unknown]
  - Asthma [Unknown]
